FAERS Safety Report 13547088 (Version 1)
Quarter: 2017Q2

REPORT INFORMATION
  Report Type: Spontaneous
  Country: GB (occurrence: GB)
  Receive Date: 20170515
  Receipt Date: 20170515
  Transmission Date: 20170830
  Serious: Yes (Other)
  Sender: FDA-Public Use
  Company Number: GB-SA-2017SA083604

PATIENT
  Age: 42 Year
  Sex: Female

DRUGS (5)
  1. BACLOFEN. [Concomitant]
     Active Substance: BACLOFEN
     Dates: start: 201608
  2. LACTULOSE. [Concomitant]
     Active Substance: LACTULOSE
     Dates: start: 201608
  3. PREGABALIN. [Concomitant]
     Active Substance: PREGABALIN
     Dates: start: 201608
  4. ALEMTUZUMAB [Suspect]
     Active Substance: ALEMTUZUMAB
     Indication: RELAPSING-REMITTING MULTIPLE SCLEROSIS
     Route: 065
     Dates: start: 20160229
  5. TRAMADOL. [Concomitant]
     Active Substance: TRAMADOL
     Dates: start: 201608

REACTIONS (2)
  - Abortion spontaneous [Unknown]
  - Exposure during pregnancy [Unknown]

NARRATIVE: CASE EVENT DATE: 20170402
